FAERS Safety Report 8516892-0 (Version None)
Quarter: 2012Q3

REPORT INFORMATION
  Report Type: 
  Country: None (occurrence: None)
  Receive Date: 20120718
  Receipt Date: 20120710
  Transmission Date: 20120928
  Serious: Yes (Other)
  Sender: FDA-Public Use
  Company Number: CH-ELI_LILLY_AND_COMPANY-CH201205010828

PATIENT
  Sex: Female
  Weight: 45 kg

DRUGS (13)
  1. LISINOPRIL [Concomitant]
  2. VI-DE 3 [Concomitant]
     Dosage: 6 GTT, QD
  3. PARACETAMOL/CODEINEFOSFAAT [Concomitant]
  4. CALCIUM SANDOZ F [Concomitant]
     Dosage: UNK, QD
  5. NOVALGIN [Concomitant]
  6. LORAZEPAM [Concomitant]
  7. BUSCOPAN [Concomitant]
  8. PANTOPRAZOLE [Concomitant]
  9. FORTEO [Suspect]
     Indication: OSTEOPOROSIS
     Dosage: 20 UG, QD
     Route: 058
     Dates: start: 20090210, end: 20090616
  10. FURODRIX                           /00032601/ [Concomitant]
  11. MAGNESIOCARD [Concomitant]
  12. CONCOR [Concomitant]
  13. METOLAZONE [Concomitant]

REACTIONS (1)
  - LIVER DISORDER [None]
